FAERS Safety Report 8826085 (Version 1)
Quarter: 2012Q4

REPORT INFORMATION
  Report Type: 
  Country: US (occurrence: US)
  Receive Date: 20121008
  Receipt Date: 20121008
  Transmission Date: 20130627
  Serious: Yes (Death, Hospitalization)
  Sender: FDA-Public Use
  Company Number: US-JNJFOC-20121003096

PATIENT
  Age: 38 Year
  Sex: Female
  Weight: 49.9 kg

DRUGS (3)
  1. TYLENOL [Suspect]
     Route: 048
  2. TYLENOL [Suspect]
     Indication: PAIN
     Route: 048
  3. VICODIN [Suspect]
     Indication: PAIN
     Route: 065

REACTIONS (3)
  - Acute hepatic failure [Fatal]
  - Toxicity to various agents [Fatal]
  - Cerebrovascular accident [Fatal]
